FAERS Safety Report 15133914 (Version 1)
Quarter: 2018Q3

REPORT INFORMATION
  Report Type: Spontaneous
  Country: KR (occurrence: KR)
  Receive Date: 20180712
  Receipt Date: 20180712
  Transmission Date: 20181010
  Serious: Yes (Other)
  Sender: FDA-Public Use
  Company Number: KR-BAUSCH-BL-2018-018936

PATIENT
  Age: 73 Year
  Sex: Male
  Weight: 70 kg

DRUGS (9)
  1. PYRIDOSTIGMINE [Suspect]
     Active Substance: PYRIDOSTIGMINE
     Indication: NEUROMUSCULAR BLOCKADE REVERSAL
     Route: 042
  2. DESFLURANE. [Concomitant]
     Active Substance: DESFLURANE
     Indication: MAINTENANCE OF ANAESTHESIA
     Dosage: 4.0?6.0 VOLUME PERCENT
  3. GLYCOPYRROLATE. [Suspect]
     Active Substance: GLYCOPYRROLATE
     Indication: NEUROMUSCULAR BLOCKADE REVERSAL
     Route: 042
  4. NITROUS OXIDE. [Concomitant]
     Active Substance: NITROUS OXIDE
     Indication: MAINTENANCE OF ANAESTHESIA
  5. LIDOCAINE. [Concomitant]
     Active Substance: LIDOCAINE
     Indication: GENERAL ANAESTHESIA
     Route: 042
  6. ROCURONIUM BROMIDE. [Concomitant]
     Active Substance: ROCURONIUM BROMIDE
     Indication: GENERAL ANAESTHESIA
     Route: 042
  7. OXYGEN. [Concomitant]
     Active Substance: OXYGEN
     Indication: MAINTENANCE OF ANAESTHESIA
  8. PROPOFOL. [Concomitant]
     Active Substance: PROPOFOL
     Indication: GENERAL ANAESTHESIA
     Route: 042
  9. ALFENTANIL. [Concomitant]
     Active Substance: ALFENTANIL
     Indication: GENERAL ANAESTHESIA
     Route: 042

REACTIONS (1)
  - Anaphylactic reaction [Recovered/Resolved]
